FAERS Safety Report 7774103-8 (Version None)
Quarter: 2011Q3

REPORT INFORMATION
  Report Type: 
  Country: None (occurrence: None)
  Receive Date: 20110923
  Receipt Date: 20110920
  Transmission Date: 20111222
  Serious: No
  Sender: FDA-Public Use
  Company Number: US-PFIZER INC-2011223054

PATIENT
  Sex: Female
  Weight: 68 kg

DRUGS (2)
  1. NEURONTIN [Suspect]
     Indication: POST HERPETIC NEURALGIA
     Dosage: 600MG, UNK FREQUENCY
     Route: 048
  2. NEURONTIN [Suspect]
     Indication: HERPES ZOSTER
     Dosage: 300 MG, 4X/DAY
     Route: 048

REACTIONS (2)
  - PAIN [None]
  - BALANCE DISORDER [None]
